FAERS Safety Report 7220235-2 (Version None)
Quarter: 2011Q1

REPORT INFORMATION
  Report Type: 
  Country: None (occurrence: None)
  Receive Date: 20110111
  Receipt Date: 20110110
  Transmission Date: 20110831
  Serious: Yes (Other)
  Sender: FDA-Public Use
  Company Number: US-AMGEN-USASP2011001473

PATIENT

DRUGS (1)
  1. ENBREL [Suspect]
     Indication: OFF LABEL USE
     Dates: start: 20050601, end: 20101223

REACTIONS (1)
  - INTERVERTEBRAL DISC PROTRUSION [None]
